FAERS Safety Report 6723296-X (Version None)
Quarter: 2010Q2

REPORT INFORMATION
  Report Type: 
  Country: None (occurrence: None)
  Receive Date: 20100513
  Receipt Date: 20100513
  Transmission Date: 20101027
  Serious: Yes (Other)
  Sender: FDA-Public Use
  Company Number: None

PATIENT
  Sex: Female
  Weight: 17.6903 kg

DRUGS (1)
  1. CHILDREN'S ZYRTEC ALLERGY [Suspect]
     Indication: SEASONAL ALLERGY
     Dosage: 2.5 ML ONCE A DAY PO
     Route: 048
     Dates: start: 20080527, end: 20100512

REACTIONS (2)
  - EPISTAXIS [None]
  - PRODUCT QUALITY ISSUE [None]
